FAERS Safety Report 25732444 (Version 2)
Quarter: 2025Q4

REPORT INFORMATION
  Report Type: Spontaneous
  Country: US (occurrence: US)
  Receive Date: 20250827
  Receipt Date: 20251027
  Transmission Date: 20260118
  Serious: No
  Sender: MYLAN
  Company Number: US-MYLANLABS-2025M1070916

PATIENT
  Age: 63 Year
  Weight: 63.5 kg

DRUGS (4)
  1. WIXELA INHUB [Suspect]
     Active Substance: FLUTICASONE PROPIONATE\SALMETEROL XINAFOATE
     Indication: Asthma
     Dosage: 250 PER 50 MICROGRAM, BID
     Dates: start: 202403, end: 202406
  2. WIXELA INHUB [Suspect]
     Active Substance: FLUTICASONE PROPIONATE\SALMETEROL XINAFOATE
     Dosage: 250 PER 50 MICROGRAM, BID
     Route: 065
     Dates: start: 202403, end: 202406
  3. WIXELA INHUB [Suspect]
     Active Substance: FLUTICASONE PROPIONATE\SALMETEROL XINAFOATE
     Dosage: 250 PER 50 MICROGRAM, BID
     Route: 065
     Dates: start: 202403, end: 202406
  4. WIXELA INHUB [Suspect]
     Active Substance: FLUTICASONE PROPIONATE\SALMETEROL XINAFOATE
     Dosage: 250 PER 50 MICROGRAM, BID
     Dates: start: 202403, end: 202406

REACTIONS (9)
  - Diplopia [Recovered/Resolved]
  - Impaired driving ability [Recovered/Resolved]
  - Impaired work ability [Recovered/Resolved]
  - Visual impairment [Recovered/Resolved]
  - Visual field defect [Recovered/Resolved]
  - Diarrhoea [Recovered/Resolved]
  - Vision blurred [Recovered/Resolved]
  - Product substitution issue [Unknown]
  - Therapeutic response decreased [Unknown]

NARRATIVE: CASE EVENT DATE: 20240401
